FAERS Safety Report 22526959 (Version 3)
Quarter: 2023Q4

REPORT INFORMATION
  Report Type: Spontaneous
  Country: US (occurrence: US)
  Receive Date: 20230606
  Receipt Date: 20231006
  Transmission Date: 20240109
  Serious: Yes (Other)
  Sender: FDA-Public Use
  Company Number: US-BAYER-2023A075397

PATIENT
  Age: 90 Year
  Sex: Male

DRUGS (1)
  1. XOFIGO [Suspect]
     Active Substance: RADIUM RA-223 DICHLORIDE
     Dosage: UNK
     Dates: start: 20230525, end: 20230525

REACTIONS (1)
  - Vessel puncture site haemorrhage [Recovered/Resolved]

NARRATIVE: CASE EVENT DATE: 20230525
